FAERS Safety Report 10311007 (Version 1)
Quarter: 2014Q3

REPORT INFORMATION
  Report Type: Spontaneous
  Country: FR (occurrence: None)
  Receive Date: 20140714
  Receipt Date: 20140714
  Transmission Date: 20150326
  Serious: Yes (Life-Threatening, Hospitalization, Other)
  Sender: FDA-Public Use
  Company Number: 2014186387

PATIENT
  Age: 72 Year
  Sex: Male

DRUGS (3)
  1. EFFIENT (PRASUGREL HYDROCHLORIDE) [Concomitant]
  2. FRAGMINE [Suspect]
     Active Substance: DALTEPARIN SODIUM
     Dosage: UNK, SUBCUTANEOUS?
     Route: 058
     Dates: start: 20140228, end: 20140303
  3. KARDEGIC [Suspect]
     Active Substance: ASPIRIN LYSINE
     Dosage: 75 MG, 1X/DAY, ORAL
     Route: 048
     Dates: start: 20131015, end: 20140303

REACTIONS (5)
  - Drug interaction [None]
  - Cerebral haematoma [None]
  - Subarachnoid haemorrhage [None]
  - Status epilepticus [None]
  - Post procedural haemorrhage [None]

NARRATIVE: CASE EVENT DATE: 20140303
